FAERS Safety Report 18601516 (Version 2)
Quarter: 2020Q4

REPORT INFORMATION
  Report Type: Spontaneous
  Country: BR (occurrence: BR)
  Receive Date: 20201210
  Receipt Date: 20201223
  Transmission Date: 20210114
  Serious: Yes (Other)
  Sender: FDA-Public Use
  Company Number: NVSC2020BR325476

PATIENT
  Sex: Female
  Weight: 80 kg

DRUGS (4)
  1. CARVEDILOL. [Concomitant]
     Active Substance: CARVEDILOL
     Indication: PRODUCT USED FOR UNKNOWN INDICATION
     Dosage: UNK UNK, BID (STARTED 2 YEARS AGO)
     Route: 048
  2. SPIRONOLACTONE. [Concomitant]
     Active Substance: SPIRONOLACTONE
     Indication: PRODUCT USED FOR UNKNOWN INDICATION
     Dosage: UNK UNK, QD (STARTED 2 YEARS AGO)
     Route: 048
  3. TEGRETOL [Suspect]
     Active Substance: CARBAMAZEPINE
     Indication: PRODUCT USED FOR UNKNOWN INDICATION
     Dosage: UNK UNK, BID (30 YEARS AGO)
     Route: 065
  4. ENTRESTO [Suspect]
     Active Substance: SACUBITRIL\VALSARTAN
     Indication: CARDIAC FAILURE
     Dosage: UNK UNK, BID (2YEARS AGO)
     Route: 048

REACTIONS (6)
  - Dyspnoea [Unknown]
  - Cardiac disorder [Unknown]
  - Altered state of consciousness [Unknown]
  - Asthenia [Unknown]
  - Drug dependence [Unknown]
  - Depressed mood [Unknown]
